FAERS Safety Report 8124882-5 (Version None)
Quarter: 2012Q1

REPORT INFORMATION
  Report Type: 
  Country: None (occurrence: None)
  Receive Date: 20120209
  Receipt Date: 20120201
  Transmission Date: 20120608
  Serious: Yes (Hospitalization)
  Sender: FDA-Public Use
  Company Number: US-BAYER-2011-029717

PATIENT
  Age: 21 Year
  Sex: Female
  Weight: 96 kg

DRUGS (9)
  1. YASMIN [Suspect]
     Indication: PREMENSTRUAL SYNDROME
     Dosage: UNK
     Dates: start: 20080401, end: 20080901
  2. YAZ [Suspect]
     Indication: CONTRACEPTION
     Dosage: UNK
     Dates: start: 20070901, end: 20080301
  3. YAZ [Suspect]
     Indication: PREMENSTRUAL SYNDROME
  4. DROSPIRENONE AND ETHINYL ESTRADIOL [Suspect]
     Indication: CONTRACEPTION
     Dosage: UNK
     Dates: start: 20081001, end: 20090701
  5. DROSPIRENONE AND ETHINYL ESTRADIOL [Suspect]
     Indication: PREMENSTRUAL SYNDROME
     Dosage: UNK
  6. SPIRONOLACTONE [Concomitant]
     Indication: DIURETIC THERAPY
     Dosage: 1000 MG, EVERY DAY
     Route: 048
     Dates: start: 20090401, end: 20090501
  7. METFORMIN HCL [Concomitant]
     Indication: WEIGHT DECREASED
     Dosage: 500 MG, EVERY DAY
     Route: 048
     Dates: start: 20090401, end: 20090501
  8. SYNTHROID [Concomitant]
     Indication: THYROID DISORDER
     Dosage: 50 U, EVEREDAY
     Route: 048
     Dates: start: 20090401, end: 20090501
  9. YASMIN [Suspect]
     Indication: CONTRACEPTION
     Dosage: UNK
     Dates: start: 20041201, end: 20060801

REACTIONS (4)
  - CHOLECYSTITIS CHRONIC [None]
  - PAIN [None]
  - CHOLELITHIASIS [None]
  - MENTAL DISORDER [None]
